FAERS Safety Report 4384517-4 (Version None)
Quarter: 2004Q2

REPORT INFORMATION
  Report Type: 
  Country: None (occurrence: None)
  Receive Date: 20040610
  Receipt Date: 20040219
  Transmission Date: 20050107
  Serious: No
  Sender: FDA-Public Use
  Company Number: US-JNJFOC-20040204189

PATIENT
  Age: 86 Year
  Sex: Female
  Weight: 65.9 kg

DRUGS (2)
  1. NATRECOR [Suspect]
     Indication: CARDIAC FAILURE CONGESTIVE
     Dosage: SEE IMAGE
     Route: 042
     Dates: start: 20040218, end: 20040219
  2. NATRECOR [Suspect]
     Indication: CARDIAC FAILURE CONGESTIVE
     Dosage: SEE IMAGE
     Route: 042
     Dates: start: 20040219, end: 20040219

REACTIONS (3)
  - HYPOTENSION [None]
  - MEDICATION ERROR [None]
  - OVERDOSE [None]
